FAERS Safety Report 18778841 (Version 2)
Quarter: 2021Q1

REPORT INFORMATION
  Report Type: Spontaneous
  Country: BR (occurrence: BR)
  Receive Date: 20210124
  Receipt Date: 20210208
  Transmission Date: 20210419
  Serious: Yes (Hospitalization, Other)
  Sender: FDA-Public Use
  Company Number: BR-BEH-2021127406

PATIENT
  Age: 66 Year
  Sex: Female
  Weight: 85.2 kg

DRUGS (2)
  1. PRIVIGEN [Suspect]
     Active Substance: HUMAN IMMUNOGLOBULIN G
     Indication: IMMUNOMODULATORY THERAPY
     Dosage: 28 GRAM, QD
     Route: 042
     Dates: start: 20201017, end: 20201018
  2. PRIVIGEN [Suspect]
     Active Substance: HUMAN IMMUNOGLOBULIN G
     Indication: GUILLAIN-BARRE SYNDROME

REACTIONS (1)
  - Acute respiratory distress syndrome [Recovered/Resolved with Sequelae]

NARRATIVE: CASE EVENT DATE: 20201018
